FAERS Safety Report 5371275-X (Version None)
Quarter: 2007Q2

REPORT INFORMATION
  Report Type: 
  Country: None (occurrence: None)
  Receive Date: 20070615
  Receipt Date: 20070131
  Transmission Date: 20071010
  Serious: Yes (Hospitalization, Other)
  Sender: FDA-Public Use
  Company Number: 200618920US

PATIENT
  Age: 54 Year
  Sex: Female
  Weight: 125.45 kg

DRUGS (12)
  1. LANTUS [Suspect]
     Indication: DIABETES MELLITUS NON-INSULIN-DEPENDENT
     Dosage: 30 U QD
     Dates: start: 20061009
  2. PIOGLITAZONE HYDROCHLORIDE (ACTOSE) [Concomitant]
  3. IMURAN [Concomitant]
  4. SYNTHROID [Concomitant]
  5. TETRYZOLINE HYDROCHLORIDE (EYE DROPS) [Concomitant]
  6. CRESTOR [Concomitant]
  7. LASIX [Concomitant]
  8. VALSARTAN (DIOVANE) [Concomitant]
  9. HYDROXYZINE [Concomitant]
  10. MULTI-VITAMIN [Concomitant]
  11. BYETTA [Concomitant]
  12. METFORMIN HYDROCHLORIDE [Concomitant]

REACTIONS (3)
  - BLOOD GLUCOSE INCREASED [None]
  - DRUG INEFFECTIVE [None]
  - HYPOGLYCAEMIA [None]
